FAERS Safety Report 4848427-8 (Version None)
Quarter: 2005Q4

REPORT INFORMATION
  Report Type: 
  Country: None (occurrence: None)
  Receive Date: 20051208
  Receipt Date: 20050920
  Transmission Date: 20060501
  Serious: Yes (Hospitalization)
  Sender: FDA-Public Use
  Company Number: FR-GLAXOSMITHKLINE-B0394526A

PATIENT
  Age: 81 Year
  Sex: Female

DRUGS (4)
  1. AUGMENTIN [Suspect]
     Indication: EAR INFECTION
     Dosage: 1G TWICE PER DAY
     Route: 048
     Dates: start: 20050628, end: 20050704
  2. DELURSAN [Concomitant]
     Dosage: 2UNIT PER DAY
     Route: 048
     Dates: start: 20020101
  3. EFFERALGAN [Concomitant]
     Route: 048
  4. LEXOMIL [Concomitant]
     Route: 048

REACTIONS (9)
  - ASTHENIA [None]
  - BLOOD IRON DECREASED [None]
  - COUGH [None]
  - DYSPNOEA EXERTIONAL [None]
  - LEUKOPENIA [None]
  - MYELOCYTOSIS [None]
  - NEUTROPENIA [None]
  - NORMOCHROMIC NORMOCYTIC ANAEMIA [None]
  - PRODUCTIVE COUGH [None]
